FAERS Safety Report 20601219 (Version 1)
Quarter: 2022Q1

REPORT INFORMATION
  Report Type: Spontaneous
  Country: CN (occurrence: CN)
  Receive Date: 20220316
  Receipt Date: 20220316
  Transmission Date: 20220423
  Serious: Yes (Other)
  Sender: FDA-Public Use
  Company Number: CN-ABBVIE-22K-035-4317550-00

PATIENT
  Age: 25 Year
  Sex: Male
  Weight: 75 kg

DRUGS (6)
  1. VALPROATE SODIUM [Suspect]
     Active Substance: VALPROATE SODIUM
     Indication: Epilepsy
     Dosage: 0.5 DF, TID
     Route: 048
     Dates: start: 2006
  2. VALPROATE SODIUM [Suspect]
     Active Substance: VALPROATE SODIUM
     Dosage: 1 DF, TID
     Route: 048
  3. VALPROATE SODIUM [Suspect]
     Active Substance: VALPROATE SODIUM
     Dosage: 2 DF, TID
     Route: 048
  4. VALPROATE SODIUM [Suspect]
     Active Substance: VALPROATE SODIUM
     Indication: Epilepsy
     Dosage: 0.5 DF, BID FOR 3 DAYS
     Route: 048
     Dates: start: 202004, end: 202004
  5. VALPROATE SODIUM [Suspect]
     Active Substance: VALPROATE SODIUM
     Dosage: FROM THE 3RD DAY TO 7TH DAY, DOSAGE WAS 1/TABLET/BID
     Route: 048
     Dates: start: 202004, end: 202004
  6. VALPROATE SODIUM [Suspect]
     Active Substance: VALPROATE SODIUM
     Dosage: AFTER THE 7TH DAY, DOSAGE WAS 2 TABLETS/BID
     Route: 048
     Dates: start: 202004

REACTIONS (7)
  - Disorganised speech [Unknown]
  - Epilepsy [Unknown]
  - Feeling abnormal [Unknown]
  - Anger [Unknown]
  - Intentional product misuse [Unknown]
  - Intentional product misuse [Unknown]
  - Blood pressure systolic increased [Unknown]

NARRATIVE: CASE EVENT DATE: 20200401
